FAERS Safety Report 8729996 (Version 2)
Quarter: 2013Q4

REPORT INFORMATION
  Report Type: Spontaneous
  Country: US (occurrence: US)
  Receive Date: 20120817
  Receipt Date: 20131217
  Transmission Date: 20140711
  Serious: No
  Sender: FDA-Public Use
  Company Number: US-GLAXOSMITHKLINE-A0979946A

PATIENT
  Sex: Male

DRUGS (7)
  1. VOTRIENT [Suspect]
     Indication: RENAL CANCER
     Dosage: 600MG PER DAY
     Route: 048
  2. AMLODIPINE [Concomitant]
  3. LISINOPRIL [Concomitant]
  4. OMEPRAZOLE [Concomitant]
  5. LEVOTHYROXIN [Concomitant]
  6. CHLORTHALIDONE [Concomitant]
  7. CELEXA [Concomitant]

REACTIONS (5)
  - Diarrhoea [Unknown]
  - Vomiting [Unknown]
  - Lower respiratory tract infection [Unknown]
  - Hair colour changes [Unknown]
  - Nausea [Unknown]
